FAERS Safety Report 16833370 (Version 1)
Quarter: 2019Q4

REPORT INFORMATION
  Report Type: Spontaneous
  Country: US (occurrence: US)
  Receive Date: 20190920
  Receipt Date: 20190920
  Transmission Date: 20200122
  Serious: No
  Sender: FDA-Public Use
  Company Number: None

PATIENT
  Sex: Female

DRUGS (1)
  1. PREGABALIN 50 MG [Suspect]
     Active Substance: PREGABALIN

REACTIONS (5)
  - Pruritus [None]
  - Mouth swelling [None]
  - Lip swelling [None]
  - Eating disorder [None]
  - Swelling face [None]
